FAERS Safety Report 14491971 (Version 3)
Quarter: 2018Q1

REPORT INFORMATION
  Report Type: Spontaneous
  Country: AE (occurrence: AE)
  Receive Date: 20180206
  Receipt Date: 20180301
  Transmission Date: 20180509
  Serious: Yes (Hospitalization, Other)
  Sender: FDA-Public Use
  Company Number: AE-SA-2018SA020532

PATIENT
  Sex: Female

DRUGS (1)
  1. LEMTRADA [Suspect]
     Active Substance: ALEMTUZUMAB
     Route: 041
     Dates: start: 2018

REACTIONS (11)
  - Abdominal pain upper [Recovering/Resolving]
  - Dyspnoea [Recovering/Resolving]
  - Heart rate increased [Unknown]
  - Alanine aminotransferase increased [Recovering/Resolving]
  - Hypoaesthesia [Not Recovered/Not Resolved]
  - Feeding disorder [Recovering/Resolving]
  - Fatigue [Recovering/Resolving]
  - Vomiting [Recovering/Resolving]
  - Vision blurred [Not Recovered/Not Resolved]
  - Bradycardia [Unknown]
  - Acne [Unknown]

NARRATIVE: CASE EVENT DATE: 2018
